FAERS Safety Report 10171251 (Version 1)
Quarter: 2014Q2

REPORT INFORMATION
  Report Type: Spontaneous
  Country: US (occurrence: None)
  Receive Date: 20140425
  Receipt Date: 20140425
  Transmission Date: 20141212
  Serious: No
  Sender: FDA-Public Use
  Company Number: 2013SGN00542

PATIENT
  Age: 23 Year
  Sex: Male

DRUGS (4)
  1. ADCETRIS [Suspect]
     Indication: HODGKIN^S DISEASE
     Dates: start: 20130820, end: 20130820
  2. DILAUDID (HYDROMORPHONE HYDROCHLORIDE) [Concomitant]
  3. LOPRESSOR (METOPROLOL TARTRATE) [Concomitant]
  4. AMBIEN (ZOLPIDEM TARTRATE) [Concomitant]

REACTIONS (1)
  - Swelling face [None]
